FAERS Safety Report 16731402 (Version 3)
Quarter: 2020Q1

REPORT INFORMATION
  Report Type: Spontaneous
  Country: FR (occurrence: FR)
  Receive Date: 20190822
  Receipt Date: 20200207
  Transmission Date: 20200409
  Serious: Yes (Hospitalization, Other)
  Sender: FDA-Public Use
  Company Number: FR-MYLANLABS-2019M1078252

PATIENT
  Sex: Female
  Weight: 2.1 kg

DRUGS (7)
  1. CLOBAZAM. [Suspect]
     Active Substance: CLOBAZAM
     Indication: PRODUCT USED FOR UNKNOWN INDICATION
     Dosage: UNK
     Route: 064
  2. URBANYL [Suspect]
     Active Substance: CLOBAZAM
     Indication: EPILEPSY
     Dosage: UNK
     Route: 064
     Dates: start: 20121230, end: 201306
  3. URBANYL [Suspect]
     Active Substance: CLOBAZAM
     Dosage: UNK
     Route: 064
  4. DEPAKINE                           /00228502/ [Suspect]
     Active Substance: VALPROATE SODIUM
     Indication: EPILEPSY
     Dosage: UNK
     Route: 064
     Dates: start: 20130609, end: 20130909
  5. URBANYL [Suspect]
     Active Substance: CLOBAZAM
     Dosage: UNK
     Route: 064
  6. LEVETIRACETAM. [Suspect]
     Active Substance: LEVETIRACETAM
     Indication: EPILEPSY
     Dosage: 1750 MILLIGRAM, QD (DAILY)
     Route: 064
     Dates: start: 20121230, end: 201306
  7. DEPAKINE                           /00228502/ [Suspect]
     Active Substance: VALPROATE SODIUM
     Dosage: UNK
     Route: 064

REACTIONS (5)
  - Thrombocytopenia [Unknown]
  - Cytomegalovirus infection [Unknown]
  - Low birth weight baby [Unknown]
  - Foetal exposure during pregnancy [Recovered/Resolved]
  - Foetal growth restriction [Recovered/Resolved]

NARRATIVE: CASE EVENT DATE: 20121230
